FAERS Safety Report 6583011-X (Version None)
Quarter: 2010Q1

REPORT INFORMATION
  Report Type: 
  Country: None (occurrence: None)
  Receive Date: 20100216
  Receipt Date: 20100205
  Transmission Date: 20100710
  Serious: Yes (Hospitalization)
  Sender: FDA-Public Use
  Company Number: US-JNJFOC-20091102833

PATIENT
  Sex: Female
  Weight: 80.74 kg

DRUGS (6)
  1. REMICADE [Suspect]
     Indication: COLITIS ULCERATIVE
     Dosage: DOSE UNSPECIFIED
     Route: 042
  2. REMICADE [Suspect]
     Dosage: DOSE UNSPECIFIED
     Route: 042
  3. PREDNISONE [Concomitant]
     Indication: COLITIS ULCERATIVE
  4. METHOTREXATE [Concomitant]
  5. VANCOMYCIN [Concomitant]
     Route: 042
  6. IMURAN [Concomitant]
     Indication: COLITIS ULCERATIVE

REACTIONS (6)
  - BACTERAEMIA [None]
  - LISTERIA SEPSIS [None]
  - MENINGITIS LISTERIA [None]
  - SEPTIC EMBOLUS [None]
  - SINUSITIS [None]
  - SPLENIC INFARCTION [None]
